FAERS Safety Report 9276688 (Version 1)
Quarter: 2013Q2

REPORT INFORMATION
  Report Type: Spontaneous
  Country: US (occurrence: None)
  Receive Date: 20130501
  Receipt Date: 20130501
  Transmission Date: 20140414
  Serious: Yes (Other)
  Sender: FDA-Public Use
  Company Number: ADR-2013-00735

PATIENT
  Sex: Male

DRUGS (1)
  1. LIORESAL INTRATHECAL (BACLOFEN INJECTION) [Suspect]

REACTIONS (3)
  - Device related infection [None]
  - Encephalitis [None]
  - Meningitis [None]
